FAERS Safety Report 18498004 (Version 1)
Quarter: 2020Q4

REPORT INFORMATION
  Report Type: Spontaneous
  Country: US (occurrence: US)
  Receive Date: 20201112
  Receipt Date: 20201112
  Transmission Date: 20210114
  Serious: No
  Sender: FDA-Public Use
  Company Number: US-RIGEL PHARMACEUTICALS, INC.-2020FOS000369

PATIENT
  Age: 78 Year
  Sex: Female

DRUGS (2)
  1. ELIQUIS [Concomitant]
     Active Substance: APIXABAN
     Indication: PRODUCT USED FOR UNKNOWN INDICATION
     Dosage: 5 MG, BID
  2. TAVALISSE [Suspect]
     Active Substance: FOSTAMATINIB
     Indication: AUTOIMMUNE HAEMOLYTIC ANAEMIA
     Dosage: 50 MG, QD
     Route: 048
     Dates: start: 20200718

REACTIONS (3)
  - Diarrhoea [Unknown]
  - Wrong technique in product usage process [Unknown]
  - Off label use [Unknown]

NARRATIVE: CASE EVENT DATE: 202007
